FAERS Safety Report 6295224-5 (Version None)
Quarter: 2009Q3

REPORT INFORMATION
  Report Type: 
  Country: None (occurrence: None)
  Receive Date: 20090803
  Receipt Date: 20090721
  Transmission Date: 20100115
  Serious: Yes (Other)
  Sender: FDA-Public Use
  Company Number: ES-MYLANLABS-2009S1012859

PATIENT
  Age: 49 Year
  Sex: Male

DRUGS (1)
  1. BISOPROLOL [Suspect]
     Indication: ESSENTIAL HYPERTENSION
     Dosage: 10 MG/DAY
     Route: 048

REACTIONS (2)
  - REACTION TO DRUG EXCIPIENTS [None]
  - SARCOIDOSIS [None]
